FAERS Safety Report 5017361-5 (Version None)
Quarter: 2006Q2

REPORT INFORMATION
  Report Type: 
  Country: None (occurrence: None)
  Receive Date: 20060601
  Receipt Date: 20060601
  Transmission Date: 20061013
  Serious: Yes (Hospitalization)
  Sender: FDA-Public Use
  Company Number: None

PATIENT
  Sex: Male
  Weight: 28.7 kg

DRUGS (1)
  1. RHINOCORT [Suspect]
     Indication: SNORING
     Dosage: 1 SQUIRT ONCE DAILY NASAL
     Route: 045
     Dates: start: 20060330

REACTIONS (2)
  - DEHYDRATION [None]
  - GASTROENTERITIS [None]
